FAERS Safety Report 6545360-0 (Version None)
Quarter: 2010Q1

REPORT INFORMATION
  Report Type: 
  Country: None (occurrence: None)
  Receive Date: 20100121
  Receipt Date: 20100119
  Transmission Date: 20100710
  Serious: Yes (Hospitalization, Other)
  Sender: FDA-Public Use
  Company Number: US-MERCK-0909USA03683

PATIENT
  Age: 65 Year
  Sex: Female
  Weight: 77 kg

DRUGS (4)
  1. FOSAMAX [Suspect]
     Indication: OSTEOPENIA
     Route: 048
     Dates: start: 19960101, end: 20011101
  2. FOSAMAX [Suspect]
     Route: 048
     Dates: start: 20011101, end: 20061201
  3. FOSAMAX [Suspect]
     Indication: BONE DENSITY DECREASED
     Route: 048
     Dates: start: 19960101, end: 20011101
  4. FOSAMAX [Suspect]
     Route: 048
     Dates: start: 20011101, end: 20061201

REACTIONS (23)
  - ALOPECIA [None]
  - ASTHENIA [None]
  - BURSITIS [None]
  - COLONIC POLYP [None]
  - DENTAL CARIES [None]
  - ENDOMETRIAL CANCER [None]
  - FATIGUE [None]
  - FEMUR FRACTURE [None]
  - GINGIVAL PAIN [None]
  - KYPHOSIS [None]
  - LOW DENSITY LIPOPROTEIN INCREASED [None]
  - LOW TURNOVER OSTEOPATHY [None]
  - MENISCUS LESION [None]
  - NOCTURIA [None]
  - ONYCHOCLASIS [None]
  - OSTEOARTHRITIS [None]
  - PAIN IN EXTREMITY [None]
  - POOR QUALITY SLEEP [None]
  - RESTLESS LEGS SYNDROME [None]
  - SKIN LESION [None]
  - SYNOVIAL CYST [None]
  - TOOTH DISORDER [None]
  - WEIGHT INCREASED [None]
